FAERS Safety Report 4991090-6 (Version None)
Quarter: 2006Q1

REPORT INFORMATION
  Report Type: 
  Country: None (occurrence: None)
  Receive Date: 20060314
  Receipt Date: 20060122
  Transmission Date: 20060701
  Serious: No
  Sender: FDA-Public Use
  Company Number: 2006-00139

PATIENT
  Age: 83 Year
  Sex: Female
  Weight: 64.4 kg

DRUGS (2)
  1. VELCADE [Suspect]
     Indication: MULTIPLE MYELOMA
     Dosage: IV BOLUS
     Route: 040
     Dates: start: 20060110, end: 20060120
  2. CORTICOSTEROIDS [Concomitant]

REACTIONS (2)
  - BLADDER PAIN [None]
  - DIARRHOEA [None]
